FAERS Safety Report 4642746-6 (Version None)
Quarter: 2005Q2

REPORT INFORMATION
  Report Type: 
  Country: None (occurrence: None)
  Receive Date: 20050420
  Receipt Date: 20050405
  Transmission Date: 20051028
  Serious: Yes (Other)
  Sender: FDA-Public Use
  Company Number: EWC050343121

PATIENT
  Age: 77 Year
  Sex: Female
  Weight: 50 kg

DRUGS (4)
  1. FORTEO [Suspect]
     Indication: OSTEOPOROSIS
     Dosage: 20 UG DAY
     Dates: start: 20040818
  2. TRANSTEC (BUPRENORPHINE) [Concomitant]
  3. LOMIR (ISRADIPINE) [Concomitant]
  4. INDAPAMIDE [Concomitant]

REACTIONS (1)
  - MULTIPLE MYELOMA [None]
